FAERS Safety Report 9520992 (Version 1)
Quarter: 2013Q1

REPORT INFORMATION
  Report Type: Spontaneous
  Country: US (occurrence: None)
  Receive Date: 20130305
  Receipt Date: 20130305
  Transmission Date: 20140127
  Serious: Yes (Other)
  Sender: FDA-Public Use
  Company Number: 163-21880-12081908

PATIENT
  Age: 72 Year
  Sex: Male
  Weight: 94.3 kg

DRUGS (1)
  1. REVLIMID (LENALIDOMIDE) (25 MILLIGRAM, CAPSULES) [Suspect]
     Indication: PLASMA CELL MYELOMA
     Route: 048
     Dates: start: 20080202, end: 200808

REACTIONS (9)
  - White blood cell count decreased [None]
  - Drug dose omission [None]
  - Eye swelling [None]
  - Rash [None]
  - Fatigue [None]
  - Back pain [None]
  - Headache [None]
  - Neutropenia [None]
  - Upper respiratory tract infection [None]
